FAERS Safety Report 13455889 (Version 1)
Quarter: 2017Q2

REPORT INFORMATION
  Report Type: Spontaneous
  Country: US (occurrence: US)
  Receive Date: 20170419
  Receipt Date: 20170419
  Transmission Date: 20170830
  Serious: No
  Sender: FDA-Public Use
  Company Number: US-BAYER-2017-074584

PATIENT
  Age: 24 Year
  Sex: Male

DRUGS (2)
  1. GADAVIST [Suspect]
     Active Substance: GADOBUTROL
     Indication: CARDIAC FUNCTION TEST
     Dosage: 7.5 ML, ONCE
     Dates: start: 20170417, end: 20170417
  2. GADAVIST [Suspect]
     Active Substance: GADOBUTROL
     Indication: CARDIAC FUNCTION TEST
     Dosage: 10 ML, ONCE
     Dates: start: 20170417, end: 20170417

REACTIONS (6)
  - Urticaria [Unknown]
  - Rash generalised [Unknown]
  - Chest discomfort [Unknown]
  - Dysphonia [Unknown]
  - Throat tightness [Unknown]
  - Cough [Unknown]

NARRATIVE: CASE EVENT DATE: 20170417
